FAERS Safety Report 14915459 (Version 3)
Quarter: 2018Q3

REPORT INFORMATION
  Report Type: Report from Study
  Country: US (occurrence: US)
  Receive Date: 20180518
  Receipt Date: 20180906
  Transmission Date: 20181010
  Serious: Yes (Hospitalization, Other)
  Sender: FDA-Public Use
  Company Number: US-BAYER-2018-083959

PATIENT
  Age: 53 Year
  Sex: Female

DRUGS (14)
  1. TORSEMIDE. [Concomitant]
     Active Substance: TORSEMIDE
     Dosage: 100 MG, QD
  2. DOFETILIDE. [Concomitant]
     Active Substance: DOFETILIDE
     Dosage: 250 ?G, UNK
     Dates: start: 20180323, end: 20180514
  3. ALBUTEROL. [Concomitant]
     Active Substance: ALBUTEROL
     Dosage: 90 ?G, UNK
  4. HYDROXYUREA. [Concomitant]
     Active Substance: HYDROXYUREA
     Dosage: 500 MG, UNK
     Dates: start: 20180119, end: 20180614
  5. EPOETIN ALFA [Concomitant]
     Active Substance: ERYTHROPOIETIN
  6. VITAMIN D3 [Concomitant]
     Active Substance: CHOLECALCIFEROL
     Dosage: 2000 U, UNK
  7. METOPROLOL SUCCINATE. [Concomitant]
     Active Substance: METOPROLOL SUCCINATE
     Dosage: 50 MG, QD
  8. ADEMPAS [Suspect]
     Active Substance: RIOCIGUAT
     Indication: PULMONARY ARTERIAL HYPERTENSION
     Dosage: UNK
  9. METOPROLOL TARTRATE. [Concomitant]
     Active Substance: METOPROLOL TARTRATE
     Dosage: 1.5 MG, UNK
     Dates: start: 20180506, end: 20180508
  10. DIGOXIN. [Concomitant]
     Active Substance: DIGOXIN
     Dosage: 62.5 ?G, UNK
     Dates: start: 20180507, end: 20180508
  11. MULTIVITAMIN [Concomitant]
     Active Substance: VITAMINS
  12. ACETAMINOPHEN. [Concomitant]
     Active Substance: ACETAMINOPHEN
     Dosage: 650 MG, UNK
  13. WARFARIN [Concomitant]
     Active Substance: WARFARIN
     Dosage: 5 MG, UNK
     Dates: start: 20180416, end: 20180525
  14. ADEMPAS [Suspect]
     Active Substance: RIOCIGUAT
     Indication: PULMONARY ARTERIAL HYPERTENSION
     Dosage: 1 MG, TID
     Route: 048
     Dates: start: 20170622

REACTIONS (6)
  - Atrial fibrillation [None]
  - Cardiac failure congestive [None]
  - Headache [None]
  - Accident [None]
  - Fluid retention [None]
  - Dyspnoea [None]

NARRATIVE: CASE EVENT DATE: 201804
